FAERS Safety Report 5484570-0 (Version None)
Quarter: 2007Q4

REPORT INFORMATION
  Report Type: 
  Country: None (occurrence: None)
  Receive Date: 20071012
  Receipt Date: 20071003
  Transmission Date: 20080405
  Serious: Yes (Other)
  Sender: FDA-Public Use
  Company Number: BR-PFIZER INC-2007074213

PATIENT
  Sex: Male
  Weight: 68 kg

DRUGS (9)
  1. FRONTAL [Suspect]
     Indication: BLOOD PRESSURE ABNORMAL
     Route: 048
  2. ACETYLSALICYLIC ACID [Suspect]
     Route: 048
  3. ATACAND HCT [Concomitant]
     Route: 048
  4. ALDOMET [Concomitant]
     Route: 048
  5. FENOFIBRATE [Concomitant]
     Route: 048
  6. EZETIMIBE/SIMVASTATIN [Concomitant]
     Route: 048
  7. AAS [Concomitant]
     Route: 048
  8. MODURETIC 5-50 [Concomitant]
     Route: 048
     Dates: start: 20060101, end: 20070801
  9. OMEPRAZOLE [Concomitant]
     Route: 048

REACTIONS (9)
  - ABDOMINAL PAIN UPPER [None]
  - COUGH [None]
  - DIVERTICULITIS [None]
  - HYPERTENSION [None]
  - INFLUENZA [None]
  - INSOMNIA [None]
  - MEDICATION ERROR [None]
  - PAIN [None]
  - TACHYCARDIA [None]
